FAERS Safety Report 5485975-4 (Version None)
Quarter: 2007Q4

REPORT INFORMATION
  Report Type: 
  Country: None (occurrence: None)
  Receive Date: 20071012
  Receipt Date: 20070925
  Transmission Date: 20080405
  Serious: Yes (Hospitalization)
  Sender: FDA-Public Use
  Company Number: 230202K07BRA

PATIENT
  Age: 49 Year
  Sex: Female

DRUGS (1)
  1. REBIF [Suspect]
     Dosage: 22 MCG, 2 IN 1 WEEKS
     Dates: start: 20011201

REACTIONS (2)
  - COORDINATION ABNORMAL [None]
  - MUSCULAR WEAKNESS [None]
